FAERS Safety Report 15307780 (Version 2)
Quarter: 2018Q3

REPORT INFORMATION
  Report Type: Spontaneous
  Country: KR (occurrence: KR)
  Receive Date: 20180822
  Receipt Date: 20180904
  Transmission Date: 20181010
  Serious: No
  Sender: FDA-Public Use
  Company Number: KR-ALEXION PHARMACEUTICALS INC.-A201808712

PATIENT
  Age: 9 Year
  Sex: Female
  Weight: 23 kg

DRUGS (2)
  1. SOLIRIS [Suspect]
     Active Substance: ECULIZUMAB
     Indication: OFF LABEL USE
     Dosage: 300 MG, UNK
     Route: 065
     Dates: start: 20180806
  2. SOLIRIS [Suspect]
     Active Substance: ECULIZUMAB
     Indication: THROMBOTIC MICROANGIOPATHY
     Dosage: 600 MG, QW
     Route: 065
     Dates: start: 20180702

REACTIONS (1)
  - Off label use [Recovered/Resolved]

NARRATIVE: CASE EVENT DATE: 20180702
